FAERS Safety Report 5083231-X (Version None)
Quarter: 2006Q3

REPORT INFORMATION
  Report Type: 
  Country: None (occurrence: None)
  Receive Date: 20060720
  Receipt Date: 20060509
  Transmission Date: 20061208
  Serious: Yes (Death)
  Sender: FDA-Public Use
  Company Number: 2006063271

PATIENT
  Age: 59 Year
  Sex: Female

DRUGS (1)
  1. CELEBREX [Suspect]
     Indication: PAIN
     Dosage: 800 MG (400 MG, 2 IN 1 D)
     Dates: start: 20020101, end: 20050101

REACTIONS (1)
  - ACUTE MYOCARDIAL INFARCTION [None]
